FAERS Safety Report 23173038 (Version 1)
Quarter: 2023Q4

REPORT INFORMATION
  Report Type: Spontaneous
  Country: HR (occurrence: HR)
  Receive Date: 20231110
  Receipt Date: 20231110
  Transmission Date: 20240110
  Serious: Yes (Other)
  Sender: FDA-Public Use
  Company Number: HR-009507513-2110HRV001837

PATIENT
  Age: 57 Year
  Sex: Male
  Weight: 106 kg

DRUGS (1)
  1. KEYTRUDA [Suspect]
     Active Substance: PEMBROLIZUMAB
     Indication: Metastatic malignant melanoma
     Dosage: UNK
     Dates: start: 201706

REACTIONS (15)
  - Hepatic cirrhosis [Unknown]
  - Malignant neoplasm progression [Unknown]
  - Autoimmune hepatitis [Unknown]
  - White blood cell count abnormal [Unknown]
  - Laboratory test abnormal [Unknown]
  - Neutrophil count abnormal [Unknown]
  - Haemoglobin abnormal [Unknown]
  - Blood glucose abnormal [Unknown]
  - Mean cell volume abnormal [Unknown]
  - Blood creatine abnormal [Unknown]
  - Blood bilirubin abnormal [Unknown]
  - Blood alkaline phosphatase abnormal [Unknown]
  - Gamma-glutamyltransferase abnormal [Unknown]
  - Blood potassium abnormal [Unknown]
  - C-reactive protein abnormal [Unknown]

NARRATIVE: CASE EVENT DATE: 20170706
